FAERS Safety Report 8585483-8 (Version None)
Quarter: 2012Q3

REPORT INFORMATION
  Report Type: 
  Country: None (occurrence: None)
  Receive Date: 20120810
  Receipt Date: 20120229
  Transmission Date: 20120928
  Serious: No
  Sender: FDA-Public Use
  Company Number: US-GLAXOSMITHKLINE-A0967951A

PATIENT
  Age: 59 Year
  Sex: Female

DRUGS (2)
  1. REQUIP XL [Suspect]
     Indication: PRODUCT USED FOR UNKNOWN INDICATION
     Dosage: 4MG VARIABLE DOSE
     Route: 048
     Dates: start: 20110101
  2. UNKNOWN MEDICATION [Concomitant]

REACTIONS (1)
  - MEDICATION RESIDUE [None]
